FAERS Safety Report 4941283-9 (Version None)
Quarter: 2006Q1

REPORT INFORMATION
  Report Type: 
  Country: None (occurrence: None)
  Receive Date: 20060310
  Receipt Date: 20060310
  Transmission Date: 20060701
  Serious: Yes (Life-Threatening, Hospitalization)
  Sender: FDA-Public Use
  Company Number: None

PATIENT
  Age: 74 Year
  Sex: Male
  Weight: 88.9 kg

DRUGS (4)
  1. BENZOCAINE SPRAY (HURRICAINE) [Suspect]
     Indication: ENDOSCOPY
     Dosage: SPRAY
     Route: 048
     Dates: start: 20050406
  2. ATENOLOL [Concomitant]
  3. LISINOPRIL [Concomitant]
  4. CILESTAZOL [Concomitant]

REACTIONS (1)
  - SKIN DISCOLOURATION [None]
